FAERS Safety Report 23866746 (Version 1)
Quarter: 2024Q2

REPORT INFORMATION
  Report Type: Spontaneous
  Country: CN (occurrence: CN)
  Receive Date: 20240517
  Receipt Date: 20240517
  Transmission Date: 20240716
  Serious: Yes (Other)
  Sender: FDA-Public Use
  Company Number: CN-ALAT_HILIT-112

PATIENT
  Age: 1 Year
  Sex: Male

DRUGS (3)
  1. EZETIMIBE [Suspect]
     Active Substance: EZETIMIBE
     Indication: Hyperlipidaemia
     Dosage: UNK
     Route: 048
  2. ROSUVASTATIN [Suspect]
     Active Substance: ROSUVASTATIN
     Indication: Hyperlipidaemia
     Dosage: UNK
  3. PROBUCOL [Suspect]
     Active Substance: PROBUCOL
     Indication: Hyperlipidaemia
     Dosage: UNK

REACTIONS (1)
  - Therapeutic product effect incomplete [Unknown]
